FAERS Safety Report 12081503 (Version 1)
Quarter: 2016Q1

REPORT INFORMATION
  Report Type: Spontaneous
  Country: US (occurrence: US)
  Receive Date: 20160216
  Receipt Date: 20160216
  Transmission Date: 20160526
  Serious: No
  Sender: FDA-Public Use
  Company Number: US-ELI_LILLY_AND_COMPANY-US201602004962

PATIENT
  Age: 13 Year
  Sex: Female

DRUGS (3)
  1. PROZAC [Suspect]
     Active Substance: FLUOXETINE HYDROCHLORIDE
     Indication: ANOREXIA NERVOSA
     Dosage: 20 MG, QD
     Route: 065
     Dates: start: 20160122
  2. PROZAC [Suspect]
     Active Substance: FLUOXETINE HYDROCHLORIDE
     Dosage: 60 MG, QD
     Route: 065
  3. PROZAC [Suspect]
     Active Substance: FLUOXETINE HYDROCHLORIDE
     Dosage: 40 MG, UNK

REACTIONS (5)
  - Rash [Unknown]
  - Urticaria [Unknown]
  - Pruritus [Unknown]
  - Ear swelling [Unknown]
  - Off label use [Unknown]

NARRATIVE: CASE EVENT DATE: 20160122
